FAERS Safety Report 9449974 (Version 2)
Quarter: 2013Q3

REPORT INFORMATION
  Report Type: Spontaneous
  Country: US (occurrence: US)
  Receive Date: 20130809
  Receipt Date: 20130905
  Transmission Date: 20140515
  Serious: Yes (Other)
  Sender: FDA-Public Use
  Company Number: US-FRI-1000047488

PATIENT
  Age: 59 Year
  Sex: Male

DRUGS (10)
  1. VIIBRYD [Suspect]
     Indication: DEPRESSION
     Dosage: 10 MG
     Route: 048
     Dates: start: 201304, end: 2013
  2. VIIBRYD [Suspect]
     Dosage: 20 MG
     Route: 048
     Dates: start: 2013, end: 2013
  3. VIIBRYD [Suspect]
     Indication: DEPRESSION
     Dosage: 40 MG
     Route: 048
     Dates: start: 2013, end: 201306
  4. VIIBRYD [Suspect]
     Indication: DEPRESSION
     Dosage: 20 MG
     Route: 048
     Dates: start: 201306, end: 20130708
  5. VIIBRYD [Suspect]
     Dosage: 30 MG
     Route: 048
     Dates: start: 20130709, end: 201308
  6. VIIBRYD [Suspect]
     Dosage: 40 MG
     Route: 048
     Dates: start: 201308
  7. CLONAZEPAM [Concomitant]
     Dosage: 1 MG
  8. RISPERIDONE [Concomitant]
     Indication: OBSESSIVE-COMPULSIVE DISORDER
     Dosage: 0.25 MG
  9. SUSTIVA [Concomitant]
     Indication: HIV TEST POSITIVE
     Dosage: 600 MG
  10. LIPITOR [Concomitant]

REACTIONS (7)
  - Suicidal ideation [Recovered/Resolved]
  - Diarrhoea [Not Recovered/Not Resolved]
  - Nausea [Recovered/Resolved]
  - Mania [Recovered/Resolved]
  - Irritability [Recovered/Resolved]
  - Nightmare [Recovered/Resolved]
  - Night sweats [Recovered/Resolved]
